FAERS Safety Report 8507286-2 (Version None)
Quarter: 2012Q3

REPORT INFORMATION
  Report Type: 
  Country: None (occurrence: None)
  Receive Date: 20120712
  Receipt Date: 20120705
  Transmission Date: 20120928
  Serious: Yes (Other)
  Sender: FDA-Public Use
  Company Number: CA-ROCHE-1085771

PATIENT
  Sex: Male
  Weight: 77.634 kg

DRUGS (10)
  1. ASPIRIN [Concomitant]
  2. ACTONEL [Concomitant]
  3. RANITIDINE [Concomitant]
  4. CODEINE [Concomitant]
  5. CALCIUM D 500 [Concomitant]
  6. SULFATRIM [Concomitant]
  7. ACTEMRA [Suspect]
     Dates: start: 20120612
  8. PREDNISONE [Concomitant]
  9. CELLCEPT [Concomitant]
  10. ACTEMRA [Suspect]
     Indication: RHEUMATOID ARTHRITIS
     Route: 042
     Dates: start: 20120501

REACTIONS (1)
  - GRANULOMA [None]
